FAERS Safety Report 9012599 (Version 2)
Quarter: 2013Q1

REPORT INFORMATION
  Report Type: Report from Study
  Country: US (occurrence: US)
  Receive Date: 20130114
  Receipt Date: 20130117
  Transmission Date: 20140127
  Serious: Yes (Death, Hospitalization)
  Sender: FDA-Public Use
  Company Number: US-TEVA-376625USA

PATIENT
  Age: 65 Year
  Sex: Female
  Weight: 50.2 kg

DRUGS (3)
  1. TREANDA [Suspect]
     Indication: PLASMA CELL MYELOMA
     Dosage: DAY 1, 4
     Route: 042
     Dates: start: 20121203, end: 20121206
  2. BORTEZOMIB [Suspect]
     Indication: PLASMA CELL MYELOMA
     Dosage: DAY 1, 4, 8
     Route: 058
     Dates: start: 20121203, end: 20121213
  3. DOXIL [Suspect]
     Indication: PLASMA CELL MYELOMA
     Dosage: DAY 4
     Route: 042
     Dates: start: 20121206, end: 20121206

REACTIONS (1)
  - Febrile neutropenia [Fatal]
